FAERS Safety Report 14107418 (Version 2)
Quarter: 2018Q3

REPORT INFORMATION
  Report Type: Report from Study
  Country: CA (occurrence: CA)
  Receive Date: 20171019
  Receipt Date: 20180727
  Transmission Date: 20181010
  Serious: Yes (Hospitalization, Other)
  Sender: FDA-Public Use
  Company Number: CA-TAKEDA-2017TUS021631

PATIENT
  Age: 54 Year
  Sex: Female

DRUGS (5)
  1. VEDOLIZUMAB [Suspect]
     Active Substance: VEDOLIZUMAB
     Dosage: 300 MG, Q4WEEKS
     Route: 042
     Dates: start: 20170501
  2. EMTEC [Concomitant]
     Dosage: UNK
  3. CYCLOBENZAPRINE. [Concomitant]
     Active Substance: CYCLOBENZAPRINE
     Dosage: 10 MG, QD
  4. VEDOLIZUMAB [Suspect]
     Active Substance: VEDOLIZUMAB
     Indication: CROHN^S DISEASE
     Dosage: 300 MG, UNK
     Route: 042
     Dates: start: 20150811
  5. IRON [Concomitant]
     Active Substance: IRON
     Dosage: UNK
     Route: 042

REACTIONS (6)
  - Anastomotic ulcer [Unknown]
  - Anaemia [Unknown]
  - Off label use [Unknown]
  - Abscess [Unknown]
  - Small intestinal obstruction [Unknown]
  - Abdominal adhesions [Unknown]

NARRATIVE: CASE EVENT DATE: 2017
